FAERS Safety Report 6674115-1 (Version None)
Quarter: 2010Q1

REPORT INFORMATION
  Report Type: 
  Country: None (occurrence: None)
  Receive Date: 20100329
  Receipt Date: 20091231
  Transmission Date: 20100710
  Serious: Yes (Other)
  Sender: FDA-Public Use
  Company Number: 2010002182

PATIENT
  Sex: Female

DRUGS (2)
  1. GEODON [Suspect]
     Dosage: 100 MG, ORAL
     Route: 048
     Dates: start: 20090101, end: 20090101
  2. ABILIFY [Suspect]
     Dosage: ORAL
     Route: 048
     Dates: end: 20090101

REACTIONS (1)
  - TARDIVE DYSKINESIA [None]
